FAERS Safety Report 10206538 (Version 2)
Quarter: 2016Q4

REPORT INFORMATION
  Report Type: Spontaneous
  Country: US (occurrence: US)
  Receive Date: 20140530
  Receipt Date: 20161213
  Transmission Date: 20170206
  Serious: No
  Sender: FDA-Public Use
  Company Number: US-GLAXOSMITHKLINE-A1027710A

PATIENT
  Age: 44 Year
  Sex: Male

DRUGS (8)
  1. FLOLAN [Suspect]
     Active Substance: EPOPROSTENOL SODIUM
     Dosage: 1.5 MG, 60,000 NG/ML CONCENTRATION
     Route: 042
     Dates: start: 20090115
  2. OPSUMIT [Concomitant]
     Active Substance: MACITENTAN
  3. ADEMPAS [Concomitant]
     Active Substance: RIOCIGUAT
  4. FLOLAN [Suspect]
     Active Substance: EPOPROSTENOL SODIUM
     Indication: COR PULMONALE CHRONIC
     Dosage: 1.5 VIAL STRENGTH, 60,000 NG/ML CONCENTRATION
     Route: 042
     Dates: start: 20081216
  5. FLOLAN DILUENT PH 12 SOLUTION FOR INJECTION [Suspect]
     Active Substance: GLYCINE\MANNITOL\SODIUM CHLORIDE
     Indication: PULMONARY HYPERTENSION
     Dosage: UNK
  6. REVATIO [Concomitant]
     Active Substance: SILDENAFIL CITRATE
  7. FLOLAN [Suspect]
     Active Substance: EPOPROSTENOL SODIUM
     Indication: PULMONARY HYPERTENSION
     Dosage: UNK
     Dates: start: 20081216
  8. TRACLEER [Concomitant]
     Active Substance: BOSENTAN

REACTIONS (6)
  - Application site pruritus [Unknown]
  - Device infusion issue [Unknown]
  - Scratch [Unknown]
  - Skin irritation [Unknown]
  - Complication associated with device [Unknown]
  - Insomnia [Unknown]

NARRATIVE: CASE EVENT DATE: 201310
